FAERS Safety Report 13232761 (Version 1)
Quarter: 2017Q1

REPORT INFORMATION
  Report Type: Spontaneous
  Country: US (occurrence: US)
  Receive Date: 20170214
  Receipt Date: 20170214
  Transmission Date: 20170428
  Serious: No
  Sender: FDA-Public Use
  Company Number: US-PFIZER INC-2017058617

PATIENT
  Age: 65 Year
  Sex: Female
  Weight: 89.34 kg

DRUGS (2)
  1. REVATIO [Suspect]
     Active Substance: SILDENAFIL CITRATE
     Dosage: UNK
  2. REMODULIN [Suspect]
     Active Substance: TREPROSTINIL
     Indication: PULMONARY HYPERTENSION
     Dosage: 0.005 UG/KG, UNK
     Route: 058
     Dates: start: 20161125

REACTIONS (1)
  - Blood pressure abnormal [Unknown]

NARRATIVE: CASE EVENT DATE: 201612
